FAERS Safety Report 24967467 (Version 1)
Quarter: 2025Q1

REPORT INFORMATION
  Report Type: Spontaneous
  Country: DE (occurrence: DE)
  Receive Date: 20250214
  Receipt Date: 20250214
  Transmission Date: 20250409
  Serious: No
  Sender: ALKEM
  Company Number: DE-ALKEM LABORATORIES LIMITED-DE-ALKEM-2024-04391

PATIENT
  Age: 24 Year
  Sex: Male
  Weight: 81 kg

DRUGS (4)
  1. FINGOLIMOD [Suspect]
     Active Substance: FINGOLIMOD
     Indication: Relapsing-remitting multiple sclerosis
     Route: 048
     Dates: start: 20200204
  2. Comirnaty [Concomitant]
     Indication: COVID-19
     Route: 030
     Dates: start: 20210601, end: 20210601
  3. Comirnaty [Concomitant]
     Route: 030
     Dates: start: 20210714, end: 20210714
  4. Comirnaty [Concomitant]
     Route: 030
     Dates: start: 20211220, end: 20211220

REACTIONS (1)
  - Lymphopenia [Recovered/Resolved]

NARRATIVE: CASE EVENT DATE: 20230804
